FAERS Safety Report 4595991-2 (Version None)
Quarter: 2005Q1

REPORT INFORMATION
  Report Type: 
  Country: None (occurrence: None)
  Receive Date: 20050224
  Receipt Date: 20050217
  Transmission Date: 20050727
  Serious: Yes (Hospitalization)
  Sender: FDA-Public Use
  Company Number: 2005PK00283

PATIENT
  Age: 45 Year
  Sex: Female

DRUGS (4)
  1. FASLODEX [Suspect]
     Indication: BREAST CANCER METASTATIC
     Dates: start: 20041213
  2. TENORMIN [Concomitant]
  3. AROMASIN [Concomitant]
  4. CIPROFLOXACIN HCL [Concomitant]

REACTIONS (3)
  - ACUTE ABDOMEN [None]
  - BENIGN HYDATIDIFORM MOLE [None]
  - HAEMORRHAGE [None]
